FAERS Safety Report 20157817 (Version 1)
Quarter: 2021Q4

REPORT INFORMATION
  Report Type: Report from Study
  Country: US (occurrence: US)
  Receive Date: 20211207
  Receipt Date: 20211207
  Transmission Date: 20220303
  Serious: Yes (Hospitalization, Other)
  Sender: FDA-Public Use
  Company Number: US-BAYER-2021A231411

PATIENT
  Age: 64 Year
  Sex: Female

DRUGS (1)
  1. STIVARGA [Suspect]
     Active Substance: REGORAFENIB
     Indication: Colorectal cancer metastatic
     Dosage: DAILY DOSE 160 MG FOR 21 DAYS ON, THEN 7 DAYS OFF
     Route: 048
     Dates: start: 20210728, end: 20210901

REACTIONS (2)
  - Colostomy [None]
  - Large intestine perforation [Not Recovered/Not Resolved]
